FAERS Safety Report 9959447 (Version 1)
Quarter: 2014Q1

REPORT INFORMATION
  Report Type: Spontaneous
  Country: US (occurrence: None)
  Receive Date: 20140227
  Receipt Date: 20140227
  Transmission Date: 20141002
  Serious: Yes (Other)
  Sender: FDA-Public Use
  Company Number: 2014P1001638

PATIENT
  Sex: 0

DRUGS (4)
  1. DIGOXIN [Suspect]
  2. TAMOXIFEN [Suspect]
  3. DILTIAZEM [Concomitant]
  4. WARFARIN [Concomitant]

REACTIONS (8)
  - Pleural effusion [None]
  - Osteosclerosis [None]
  - Renal mass [None]
  - Lymphadenopathy [None]
  - Drug interaction [None]
  - Metastasis [None]
  - Breast cancer male [None]
  - Malignant neoplasm progression [None]
